FAERS Safety Report 13358893 (Version 1)
Quarter: 2017Q1

REPORT INFORMATION
  Report Type: Spontaneous
  Country: US (occurrence: US)
  Receive Date: 20170322
  Receipt Date: 20170322
  Transmission Date: 20170429
  Serious: No
  Sender: FDA-Public Use
  Company Number: US-PFIZER INC-2631323

PATIENT
  Age: 20 Year
  Sex: Female
  Weight: 20 kg

DRUGS (3)
  1. PIPERACILLIN/TAZOBACTAM [Suspect]
     Active Substance: PIPERACILLIN SODIUM\TAZOBACTAM SODIUM
     Indication: INFECTION PROPHYLAXIS
     Dosage: 2.25 G, FREQ: 3 DAY; INTERVAL: 1
     Route: 041
     Dates: start: 20141002, end: 20141109
  2. TRAMADOL. [Concomitant]
     Active Substance: TRAMADOL
     Indication: PAIN
     Dosage: 25 MG, QHS, G-TUBE, FREQ: AS NEEDED
     Route: 050
  3. AMITRIPTYLINE [Concomitant]
     Active Substance: AMITRIPTYLINE
     Indication: PAIN
     Dosage: 20 MG, QHS, G-TUBE
     Route: 050

REACTIONS (12)
  - Laceration [Recovering/Resolving]
  - Tremor [Recovered/Resolved]
  - Insomnia [Recovered/Resolved]
  - Restlessness [Unknown]
  - Anxiety [Recovered/Resolved]
  - Muscle twitching [Recovered/Resolved]
  - Chapped lips [Recovered/Resolved]
  - Confusional state [Unknown]
  - Blepharospasm [Recovered/Resolved]
  - Dry mouth [Recovered/Resolved]
  - Lip haemorrhage [Recovered/Resolved]
  - Tremor [Recovered/Resolved]

NARRATIVE: CASE EVENT DATE: 20141101
